FAERS Safety Report 9958850 (Version 7)
Quarter: 2015Q2

REPORT INFORMATION
  Report Type: Report from Study
  Country: TR (occurrence: TR)
  Receive Date: 20140305
  Receipt Date: 20150507
  Transmission Date: 20150821
  Serious: Yes (Hospitalization)
  Sender: FDA-Public Use
  Company Number: TR-ROCHE-1355482

PATIENT
  Age: 74 Year
  Sex: Female
  Weight: 60 kg

DRUGS (50)
  1. BENDAMUSTINE [Suspect]
     Active Substance: BENDAMUSTINE
     Indication: CHRONIC LYMPHOCYTIC LEUKAEMIA
     Dosage: MOST RECENT DOSE 21/FEB/2014.
     Route: 042
     Dates: start: 20140220
  2. URIKOLIZ [Concomitant]
     Active Substance: ALLOPURINOL
     Indication: PROPHYLAXIS
     Route: 048
     Dates: start: 20140220, end: 20140221
  3. DESYREL [Concomitant]
     Active Substance: TRAZODONE HYDROCHLORIDE
     Route: 048
     Dates: start: 2013
  4. PAROL (TURKEY) [Concomitant]
     Route: 048
     Dates: start: 20140311, end: 20140311
  5. PAROL (TURKEY) [Concomitant]
     Route: 048
     Dates: start: 20140324, end: 20140324
  6. URIKOLIZ [Concomitant]
     Active Substance: ALLOPURINOL
     Route: 048
     Dates: start: 20140226, end: 20140302
  7. URIKOLIZ [Concomitant]
     Active Substance: ALLOPURINOL
     Route: 048
     Dates: start: 20140522, end: 20140526
  8. KYTRIL [Concomitant]
     Active Substance: GRANISETRON HYDROCHLORIDE
     Route: 041
     Dates: start: 20140324, end: 20140325
  9. SISTRAL [Concomitant]
     Route: 041
     Dates: start: 20140311, end: 20140311
  10. SISTRAL [Concomitant]
     Route: 041
     Dates: start: 20140421, end: 20140422
  11. DEKORT [Concomitant]
     Active Substance: DEXAMETHASONE
     Route: 041
     Dates: start: 20140311, end: 20140311
  12. DEKORT [Concomitant]
     Active Substance: DEXAMETHASONE
     Route: 041
     Dates: start: 20140324, end: 20140325
  13. LIPOFEN [Concomitant]
     Active Substance: FENOFIBRATE
     Indication: HYPERLIPIDAEMIA
     Route: 048
     Dates: start: 1999
  14. OMNIPAQUE [Concomitant]
     Active Substance: IOHEXOL
     Dosage: SINGLE DOSE
     Route: 042
     Dates: start: 20141013, end: 20141013
  15. PAROL (TURKEY) [Concomitant]
     Route: 048
     Dates: start: 20140421, end: 20140421
  16. URIKOLIZ [Concomitant]
     Active Substance: ALLOPURINOL
     Route: 048
     Dates: start: 20140421, end: 20140424
  17. KYTRIL [Concomitant]
     Active Substance: GRANISETRON HYDROCHLORIDE
     Route: 041
     Dates: start: 20140718, end: 20140719
  18. SISTRAL [Concomitant]
     Indication: PROPHYLAXIS
     Route: 041
     Dates: start: 20140220, end: 20140221
  19. SISTRAL [Concomitant]
     Route: 041
     Dates: start: 20140226, end: 20140226
  20. SISTRAL [Concomitant]
     Route: 041
     Dates: start: 20140522, end: 20140522
  21. DUPHALAC [Concomitant]
     Active Substance: LACTULOSE
     Route: 048
     Dates: start: 20140301, end: 20150302
  22. KARVEA [Concomitant]
     Active Substance: IRBESARTAN
     Indication: HYPERTENSION
     Route: 048
     Dates: start: 1999
  23. PAROL (TURKEY) [Concomitant]
     Route: 048
     Dates: start: 20140226, end: 20140226
  24. PAROL (TURKEY) [Concomitant]
     Route: 048
     Dates: start: 20140619, end: 20140619
  25. URIKOLIZ [Concomitant]
     Active Substance: ALLOPURINOL
     Route: 048
     Dates: start: 20140324, end: 20140328
  26. KYTRIL [Concomitant]
     Active Substance: GRANISETRON HYDROCHLORIDE
     Indication: PROPHYLAXIS
     Route: 041
     Dates: start: 20140220, end: 20140221
  27. KYTRIL [Concomitant]
     Active Substance: GRANISETRON HYDROCHLORIDE
     Route: 041
     Dates: start: 20140421, end: 20140422
  28. SISTRAL [Concomitant]
     Route: 041
     Dates: start: 20140324, end: 20140324
  29. DEKORT [Concomitant]
     Active Substance: DEXAMETHASONE
     Indication: PROPHYLAXIS
     Route: 041
     Dates: start: 20140220, end: 20140221
  30. DEKORT [Concomitant]
     Active Substance: DEXAMETHASONE
     Route: 041
     Dates: start: 20140226, end: 20140226
  31. OMNIPAQUE [Concomitant]
     Active Substance: IOHEXOL
     Indication: PROPHYLAXIS
     Dosage: SINGLE DOSE
     Route: 042
     Dates: start: 20140815, end: 20140815
  32. URIKOLIZ [Concomitant]
     Active Substance: ALLOPURINOL
     Route: 048
     Dates: start: 20140718, end: 20140722
  33. KYTRIL [Concomitant]
     Active Substance: GRANISETRON HYDROCHLORIDE
     Route: 041
     Dates: start: 20140226, end: 20140226
  34. KYTRIL [Concomitant]
     Active Substance: GRANISETRON HYDROCHLORIDE
     Route: 041
     Dates: start: 20140311, end: 20140311
  35. SISTRAL [Concomitant]
     Route: 041
     Dates: start: 20140718, end: 20140718
  36. OBINUTUZUMAB [Suspect]
     Active Substance: OBINUTUZUMAB
     Dosage: LAST DOSE PRIOR TO SAE: 26/FEB/2014.
     Route: 042
     Dates: start: 20140311
  37. PAROL (TURKEY) [Concomitant]
     Route: 048
     Dates: start: 20140718, end: 20140718
  38. URIKOLIZ [Concomitant]
     Active Substance: ALLOPURINOL
     Route: 048
     Dates: start: 20140311, end: 20140315
  39. URIKOLIZ [Concomitant]
     Active Substance: ALLOPURINOL
     Route: 048
     Dates: start: 20140619, end: 20140623
  40. KYTRIL [Concomitant]
     Active Substance: GRANISETRON HYDROCHLORIDE
     Route: 041
     Dates: start: 20140619, end: 20140620
  41. SISTRAL [Concomitant]
     Route: 041
     Dates: start: 20140619, end: 20140619
  42. DEKORT [Concomitant]
     Active Substance: DEXAMETHASONE
     Route: 041
     Dates: start: 20140718, end: 20140719
  43. OBINUTUZUMAB [Suspect]
     Active Substance: OBINUTUZUMAB
     Indication: CHRONIC LYMPHOCYTIC LEUKAEMIA
     Dosage: LAST DOSE 26/FEB/2014.
     Route: 042
     Dates: start: 20140220
  44. OMNIPAQUE [Concomitant]
     Active Substance: IOHEXOL
     Indication: HYPERTENSION
     Dosage: SINGLE DOSE
     Route: 042
     Dates: start: 20140219, end: 20140219
  45. PAROL (TURKEY) [Concomitant]
     Route: 048
     Dates: start: 20140522, end: 20140522
  46. DEKORT [Concomitant]
     Active Substance: DEXAMETHASONE
     Route: 041
     Dates: start: 20140522, end: 20140523
  47. DEKORT [Concomitant]
     Active Substance: DEXAMETHASONE
     Route: 041
     Dates: start: 20140619, end: 20140620
  48. PAROL (TURKEY) [Concomitant]
     Indication: PROPHYLAXIS
     Route: 048
     Dates: start: 20140220, end: 20140220
  49. KYTRIL [Concomitant]
     Active Substance: GRANISETRON HYDROCHLORIDE
     Route: 041
     Dates: start: 20140522, end: 20140523
  50. DEKORT [Concomitant]
     Active Substance: DEXAMETHASONE
     Route: 041
     Dates: start: 20140421, end: 20140422

REACTIONS (2)
  - Blood creatinine increased [Recovered/Resolved]
  - Urinary tract infection [Recovered/Resolved]

NARRATIVE: CASE EVENT DATE: 20140220
